FAERS Safety Report 8380092-8 (Version None)
Quarter: 2012Q2

REPORT INFORMATION
  Report Type: 
  Country: None (occurrence: None)
  Receive Date: 20120523
  Receipt Date: 20120511
  Transmission Date: 20120825
  Serious: Yes (Hospitalization)
  Sender: FDA-Public Use
  Company Number: CH-GLAXOSMITHKLINE-B0801815A

PATIENT
  Age: 57 Year
  Sex: Female

DRUGS (12)
  1. PAROXETINE HYDROCHLORIDE [Suspect]
     Indication: BIPOLAR DISORDER
     Dosage: 20MG PER DAY
     Route: 048
     Dates: end: 20120311
  2. ASPIRIN [Concomitant]
     Dosage: 100MG PER DAY
     Route: 048
  3. DIPIPERON [Suspect]
     Indication: PRODUCT USED FOR UNKNOWN INDICATION
     Route: 065
  4. RISPERDAL [Suspect]
     Indication: PRODUCT USED FOR UNKNOWN INDICATION
     Dosage: 1MG PER DAY
     Route: 048
     Dates: start: 20120220
  5. ESCITALOPRAM [Suspect]
     Indication: PRODUCT USED FOR UNKNOWN INDICATION
     Route: 065
     Dates: start: 20120220
  6. METOPROLOL [Suspect]
     Indication: PRODUCT USED FOR UNKNOWN INDICATION
     Dosage: 25MG PER DAY
     Route: 048
     Dates: end: 20120302
  7. LASIX [Concomitant]
     Dates: end: 20120301
  8. ALLOPURINOL [Concomitant]
     Dosage: 300MG PER DAY
     Route: 048
     Dates: end: 20120314
  9. TELMISARTAN [Concomitant]
     Dosage: 80MG PER DAY
     Route: 048
     Dates: end: 20120318
  10. ABILIFY [Suspect]
     Indication: PRODUCT USED FOR UNKNOWN INDICATION
     Route: 065
     Dates: end: 20120306
  11. GLICLAZID [Concomitant]
     Dosage: 30MG PER DAY
     Route: 048
  12. TORSEMIDE [Concomitant]
     Dosage: 5MG PER DAY
     Dates: start: 20120316

REACTIONS (5)
  - DRUG INTERACTION [None]
  - ELECTROCARDIOGRAM QT PROLONGED [None]
  - DIZZINESS [None]
  - BLOOD PRESSURE SYSTOLIC DECREASED [None]
  - BLOOD POTASSIUM DECREASED [None]
